FAERS Safety Report 9819439 (Version 2)
Quarter: 2014Q1

REPORT INFORMATION
  Report Type: Spontaneous
  Country: US (occurrence: US)
  Receive Date: 20140115
  Receipt Date: 20140306
  Transmission Date: 20141002
  Serious: Yes (Other)
  Sender: FDA-Public Use
  Company Number: US-BRISTOL-MYERS SQUIBB COMPANY-20019196

PATIENT
  Age: 47 Year
  Sex: Male

DRUGS (8)
  1. BYDUREON [Suspect]
     Indication: TYPE 2 DIABETES MELLITUS
     Route: 058
     Dates: start: 20130107, end: 20130307
  2. INSULIN [Concomitant]
  3. METFORMIN [Concomitant]
     Dosage: 1DF: 500 UNITS NOS
     Route: 048
  4. INVOKANA [Concomitant]
     Route: 048
  5. LISINOPRIL [Concomitant]
     Dosage: 1DF: 5 UNITS NOS
  6. LANTUS [Concomitant]
     Dosage: 1DF: 24 UNITS NOS
  7. STARLIX [Concomitant]
     Dosage: 1DF: 120 UNITS NOS
  8. CRESTOR [Concomitant]
     Dosage: 1DF: 10 UNITS NOS

REACTIONS (2)
  - Pancreatitis [Recovered/Resolved]
  - Eructation [Recovering/Resolving]
